FAERS Safety Report 20871811 (Version 1)
Quarter: 2022Q2

REPORT INFORMATION
  Report Type: Report from Study
  Country: US (occurrence: US)
  Receive Date: 20220525
  Receipt Date: 20220525
  Transmission Date: 20220721
  Serious: Yes (Other)
  Sender: FDA-Public Use
  Company Number: US-KOREA IPSEN Pharma-2022-14937

PATIENT
  Age: 66 Year
  Sex: Female

DRUGS (1)
  1. SOMATULINE DEPOT [Suspect]
     Active Substance: LANREOTIDE ACETATE
     Indication: Acromegaly
     Dosage: 120 MG EVERY 4 WEEKS
     Route: 058

REACTIONS (6)
  - Arthropathy [Recovering/Resolving]
  - Parosmia [Recovering/Resolving]
  - Palpitations [Recovering/Resolving]
  - Anxiety [Recovering/Resolving]
  - Mass [Recovering/Resolving]
  - Affect lability [Recovering/Resolving]

NARRATIVE: CASE EVENT DATE: 20220201
